FAERS Safety Report 17388266 (Version 2)
Quarter: 2020Q1

REPORT INFORMATION
  Report Type: Spontaneous
  Country: US (occurrence: US)
  Receive Date: 20200207
  Receipt Date: 20200211
  Transmission Date: 20200409
  Serious: Yes (Other)
  Sender: FDA-Public Use
  Company Number: US-ACS-001628

PATIENT
  Age: 59 Year
  Sex: Female
  Weight: 87.09 kg

DRUGS (1)
  1. MEROPENEM. [Suspect]
     Active Substance: MEROPENEM
     Route: 042

REACTIONS (11)
  - Blood pressure increased [Unknown]
  - Heart rate increased [Unknown]
  - Speech disorder [Unknown]
  - Confusional state [Unknown]
  - Visual impairment [Recovered/Resolved]
  - Feeling abnormal [Unknown]
  - Troponin increased [Unknown]
  - Flushing [Unknown]
  - Product solubility abnormal [Unknown]
  - Palpitations [Unknown]
  - Chest discomfort [Unknown]
